FAERS Safety Report 7264185-4 (Version None)
Quarter: 2011Q1

REPORT INFORMATION
  Report Type: 
  Country: None (occurrence: None)
  Receive Date: 20110131
  Receipt Date: 20110121
  Transmission Date: 20110831
  Serious: Yes (Other)
  Sender: FDA-Public Use
  Company Number: US-BIOGENIDEC-2010BI043475

PATIENT
  Age: 54 Year
  Sex: Female

DRUGS (2)
  1. AVONEX [Suspect]
     Indication: MULTIPLE SCLEROSIS
     Route: 030
     Dates: start: 20100923
  2. AVONEX [Suspect]
     Route: 030
     Dates: start: 20100101

REACTIONS (6)
  - DEPRESSION [None]
  - HEADACHE [None]
  - VISION BLURRED [None]
  - HYPERTENSION [None]
  - ORAL NEOPLASM [None]
  - TREMOR [None]
